FAERS Safety Report 9629820 (Version 2)
Quarter: 2013Q4

REPORT INFORMATION
  Report Type: Report from Study
  Country: CA (occurrence: CA)
  Receive Date: 20131017
  Receipt Date: 20131017
  Transmission Date: 20140711
  Serious: Yes (Other)
  Sender: FDA-Public Use
  Company Number: CA-ABBVIE-11P-028-0861526-00

PATIENT
  Age: 53 Year
  Sex: Female
  Weight: 137.56 kg

DRUGS (8)
  1. HUMIRA [Suspect]
     Indication: RHEUMATOID ARTHRITIS
     Route: 058
     Dates: start: 20110131, end: 20120927
  2. HUMIRA [Suspect]
     Dates: start: 20121018, end: 20121129
  3. HUMIRA [Suspect]
     Dates: start: 20130523
  4. METHOTREXATE [Concomitant]
     Dosage: 10 X 2.5 MG 1X WEEKS
     Route: 048
     Dates: start: 2002
  5. PMS-ATENOLOL [Concomitant]
     Indication: HYPERTENSION
     Route: 048
     Dates: start: 2012
  6. MELOXICAM [Concomitant]
     Indication: ANTIINFLAMMATORY THERAPY
     Route: 048
     Dates: start: 2000
  7. SANDOX-FELODIPINE [Concomitant]
     Indication: HYPERTENSION
     Route: 048
     Dates: start: 2002
  8. MICARDIS PLUS [Concomitant]
     Dosage: 80MG/25-MG 1 X DAYS
     Route: 048
     Dates: start: 2012

REACTIONS (2)
  - Weight increased [Recovered/Resolved]
  - Type 2 diabetes mellitus [Not Recovered/Not Resolved]
